FAERS Safety Report 5852564-9 (Version None)
Quarter: 2008Q3

REPORT INFORMATION
  Report Type: 
  Country: None (occurrence: None)
  Receive Date: 20080820
  Receipt Date: 20080820
  Transmission Date: 20090109
  Serious: Yes (Hospitalization)
  Sender: FDA-Public Use
  Company Number: None

PATIENT
  Sex: Male
  Weight: 88.4514 kg

DRUGS (1)
  1. DAPSONE [Suspect]
     Indication: ANTIFUNGAL PROPHYLAXIS
     Dosage: 1 PER NIGHT PO
     Route: 048
     Dates: start: 20080212, end: 20080814

REACTIONS (10)
  - BLOOD PRESSURE FLUCTUATION [None]
  - CHEST PAIN [None]
  - EAR DISORDER [None]
  - HAEMOLYSIS [None]
  - HALLUCINATION, VISUAL [None]
  - HEADACHE [None]
  - HEART RATE IRREGULAR [None]
  - INSOMNIA [None]
  - MUSCLE DISORDER [None]
  - SKIN DISORDER [None]
